FAERS Safety Report 4972203-9 (Version None)
Quarter: 2006Q2

REPORT INFORMATION
  Report Type: 
  Country: None (occurrence: None)
  Receive Date: 20060413
  Receipt Date: 20060329
  Transmission Date: 20061013
  Serious: Yes (Hospitalization)
  Sender: FDA-Public Use
  Company Number: JP-JPN-A200601079

PATIENT
  Age: 61 Year
  Sex: Male
  Weight: 57 kg

DRUGS (7)
  1. MODACIN [Suspect]
     Indication: PNEUMONIA
     Dosage: .5G TWICE PER DAY
     Route: 042
     Dates: start: 20060319, end: 20060324
  2. PICIBANIL [Suspect]
     Indication: PLEURODESIS
     Route: 038
     Dates: start: 20060320, end: 20060320
  3. DICLOFENAC [Suspect]
     Indication: PLEURODESIS
     Dosage: 50MG PER DAY
     Route: 054
     Dates: start: 20060320, end: 20060322
  4. NASEA [Concomitant]
     Dosage: .3MG UNKNOWN
     Route: 042
     Dates: start: 20060317
  5. BRIPLATIN [Concomitant]
     Indication: PLEURODESIS
     Dosage: 50MG UNKNOWN
     Route: 038
     Dates: start: 20060317, end: 20060317
  6. TRANSAMIN [Concomitant]
     Indication: LUNG NEOPLASM MALIGNANT
     Dosage: 750MG PER DAY
     Route: 048
     Dates: start: 20060322
  7. ADONA (AC-17) [Concomitant]
     Indication: LUNG NEOPLASM MALIGNANT
     Dosage: 90MG PER DAY
     Route: 048
     Dates: start: 20060322

REACTIONS (6)
  - ALANINE AMINOTRANSFERASE INCREASED [None]
  - ASPARTATE AMINOTRANSFERASE INCREASED [None]
  - BLOOD ALKALINE PHOSPHATASE INCREASED [None]
  - GAMMA-GLUTAMYLTRANSFERASE INCREASED [None]
  - HEPATIC FUNCTION ABNORMAL [None]
  - LIVER DISORDER [None]
